FAERS Safety Report 5839559-6 (Version None)
Quarter: 2008Q3

REPORT INFORMATION
  Report Type: 
  Country: None (occurrence: None)
  Receive Date: 20080811
  Receipt Date: 20080730
  Transmission Date: 20090109
  Serious: Yes (Hospitalization)
  Sender: FDA-Public Use
  Company Number: JP-WYE-H05383108

PATIENT
  Age: 78 Year
  Sex: Male

DRUGS (1)
  1. AMIODARONE HCL [Suspect]
     Dosage: UNKNOWN
     Route: 065
     Dates: start: 20060101

REACTIONS (2)
  - CARDIAC ARREST [None]
  - ORGANISING PNEUMONIA [None]
